FAERS Safety Report 8137030-2 (Version None)
Quarter: 2012Q1

REPORT INFORMATION
  Report Type: 
  Country: None (occurrence: None)
  Receive Date: 20120215
  Receipt Date: 20120207
  Transmission Date: 20120608
  Serious: Yes (Hospitalization, Other)
  Sender: FDA-Public Use
  Company Number: US-BIOGENIDEC-2012BI001729

PATIENT
  Sex: Female

DRUGS (6)
  1. ASPIRIN [Concomitant]
  2. REQUIP [Concomitant]
  3. XANAX [Concomitant]
  4. CYMBALTA [Concomitant]
  5. AVONEX [Suspect]
     Indication: MULTIPLE SCLEROSIS
     Route: 030
     Dates: start: 20101213
  6. AMBIEN [Concomitant]

REACTIONS (12)
  - NAUSEA [None]
  - CONVULSION [None]
  - UMBILICAL HERNIA [None]
  - CONSTIPATION [None]
  - DIABETES MELLITUS [None]
  - DIVERTICULUM [None]
  - CYSTITIS [None]
  - MITRAL VALVE PROLAPSE [None]
  - URINARY TRACT INFECTION [None]
  - ANGINA PECTORIS [None]
  - VOMITING [None]
  - AORTIC CALCIFICATION [None]
